FAERS Safety Report 10045977 (Version 4)
Quarter: 2014Q3

REPORT INFORMATION
  Report Type: Spontaneous
  Country: JP (occurrence: JP)
  Receive Date: 20140330
  Receipt Date: 20140701
  Transmission Date: 20150326
  Serious: Yes (Disabling, Other)
  Sender: FDA-Public Use
  Company Number: JP-TEVA-430743ISR

PATIENT
  Age: 66 Year
  Sex: Male
  Weight: 52 kg

DRUGS (7)
  1. MEROPENEM,INJ [Suspect]
     Active Substance: MEROPENEM
     Indication: SEPSIS
     Dosage: 2 GRAM DAILY;
     Route: 041
     Dates: start: 20130803
  2. MEROPENEM,INJ [Suspect]
     Active Substance: MEROPENEM
     Dosage: 1 GRAM DAILY;
     Route: 041
     Dates: end: 20130814
  3. VANCOMYCIN [Suspect]
     Active Substance: VANCOMYCIN
     Indication: SEPSIS
     Dosage: 1500 MILLIGRAM DAILY;
     Route: 041
     Dates: start: 20130809, end: 20130814
  4. MOBENZOCIN, INJ, 1G1VIAL [Concomitant]
     Indication: INFECTION
     Dosage: 4 GRAM DAILY;
     Route: 042
     Dates: start: 20130815, end: 20130827
  5. LOXOPROFEN SODIUM [Suspect]
     Active Substance: LOXOPROFEN SODIUM
     Indication: WOUND COMPLICATION
     Dosage: 180 MILLIGRAM DAILY;
     Route: 048
     Dates: start: 20130730, end: 20130805
  6. GASPORT [Suspect]
     Active Substance: FAMOTIDINE
     Indication: PROPHYLAXIS AGAINST GASTROINTESTINAL ULCER
     Dosage: 40 MILLIGRAM DAILY;
     Route: 041
     Dates: start: 20130805, end: 20130813
  7. ROPION INTRAVENOUS [Suspect]
     Active Substance: FLURBIPROFEN AXETIL
     Indication: PYREXIA
     Dosage: 50 MILLIGRAM DAILY;
     Route: 041
     Dates: start: 20130729, end: 20130811

REACTIONS (3)
  - Renal failure acute [Not Recovered/Not Resolved]
  - Liver disorder [Recovering/Resolving]
  - Septic shock [Unknown]

NARRATIVE: CASE EVENT DATE: 20130811
